FAERS Safety Report 5891481-5 (Version None)
Quarter: 2008Q3

REPORT INFORMATION
  Report Type: 
  Country: None (occurrence: None)
  Receive Date: 20080922
  Receipt Date: 20080915
  Transmission Date: 20090109
  Serious: Yes (Hospitalization)
  Sender: FDA-Public Use
  Company Number: GB-TEVA-177449ISR

PATIENT
  Age: 37 Year
  Sex: Male

DRUGS (3)
  1. CISPLATIN [Suspect]
     Indication: SEMINOMA
  2. ETOPOSIDE [Concomitant]
  3. BLEOMYCIN SULFATE [Concomitant]

REACTIONS (3)
  - ARTERIAL THROMBOSIS [None]
  - DELIRIUM [None]
  - ISCHAEMIA [None]
